FAERS Safety Report 7401873-0 (Version None)
Quarter: 2011Q2

REPORT INFORMATION
  Report Type: 
  Country: None (occurrence: None)
  Receive Date: 20110408
  Receipt Date: 20110324
  Transmission Date: 20111010
  Serious: Yes (Other)
  Sender: FDA-Public Use
  Company Number: CA-JNJFOC-20110312105

PATIENT
  Sex: Female
  Weight: 54.5 kg

DRUGS (7)
  1. REMICADE [Suspect]
     Indication: CROHN'S DISEASE
     Route: 042
  2. INDERAL [Concomitant]
  3. TRAMADOL [Concomitant]
  4. ATIVAN [Concomitant]
  5. REMERON [Concomitant]
  6. DILAUDID [Concomitant]
  7. REMICADE [Suspect]
     Route: 042

REACTIONS (1)
  - ANORECTAL DISORDER [None]
